FAERS Safety Report 6172444-1 (Version None)
Quarter: 2009Q2

REPORT INFORMATION
  Report Type: 
  Country: None (occurrence: None)
  Receive Date: 20090429
  Receipt Date: 20090424
  Transmission Date: 20091009
  Serious: Yes (Hospitalization)
  Sender: FDA-Public Use
  Company Number: JP-SANOFI-SYNTHELABO-F01200900303

PATIENT
  Sex: Male
  Weight: 96.5 kg

DRUGS (10)
  1. NORVASC [Concomitant]
     Indication: HYPERTENSION
     Route: 048
     Dates: start: 20090318
  2. HARNAL D [Concomitant]
     Route: 048
  3. BLOPRESS [Concomitant]
     Route: 048
  4. CARVACRON [Concomitant]
     Route: 048
  5. CALBLOCK [Concomitant]
     Route: 048
  6. GASMOTIN [Concomitant]
     Route: 048
  7. MAGMITT [Concomitant]
     Route: 048
  8. CALCIUM FOLINATE [Suspect]
     Indication: COLON CANCER
     Dosage: 50 MG/DAY  7 CONSECUTIVE DAYS
     Route: 048
     Dates: start: 20090310
  9. TS-1 [Suspect]
     Indication: COLON CANCER
     Dosage: 120 MG/DAY 7 CONSECUTIVE DAYS
     Route: 048
     Dates: start: 20090310
  10. ELPLAT [Suspect]
     Indication: COLON CANCER
     Route: 042
     Dates: start: 20090310, end: 20090310

REACTIONS (6)
  - ALANINE AMINOTRANSFERASE INCREASED [None]
  - ASPARTATE AMINOTRANSFERASE INCREASED [None]
  - BLOOD BILIRUBIN INCREASED [None]
  - HEPATIC FUNCTION ABNORMAL [None]
  - RENAL IMPAIRMENT [None]
  - URINARY RETENTION [None]
